FAERS Safety Report 9807558 (Version 1)
Quarter: 2014Q1

REPORT INFORMATION
  Report Type: Spontaneous
  Country: US (occurrence: US)
  Receive Date: 20140110
  Receipt Date: 20140110
  Transmission Date: 20141002
  Serious: No
  Sender: FDA-Public Use
  Company Number: US-SANOFI-AVENTIS-2013SA029840

PATIENT
  Age: 74 Year
  Sex: Male

DRUGS (6)
  1. PLAVIX [Suspect]
  2. ANTINEOPLASTIC AGENTS [Concomitant]
     Dosage: TAKEN FOR 20 DAYS
  3. METOPROLOL [Concomitant]
  4. UNKNOWDRUG [Concomitant]
  5. FUROSEMIDE [Concomitant]
  6. LISINOPRIL [Concomitant]

REACTIONS (5)
  - Red blood cell count decreased [Unknown]
  - Weight increased [Unknown]
  - Dry skin [Unknown]
  - Skin fissures [Unknown]
  - Cough [Unknown]
